FAERS Safety Report 18255226 (Version 1)
Quarter: 2020Q3

REPORT INFORMATION
  Report Type: Spontaneous
  Country: US (occurrence: US)
  Receive Date: 20200911
  Receipt Date: 20200911
  Transmission Date: 20201103
  Serious: Yes (Hospitalization)
  Sender: FDA-Public Use
  Company Number: US-PACIRA-202000372

PATIENT

DRUGS (4)
  1. KETOROLAC [Concomitant]
     Active Substance: KETOROLAC TROMETHAMINE
     Indication: PROCEDURAL PAIN
     Dosage: 10 MG EVERY 8 HOURS FOR 5 DAYS
     Route: 048
  2. OXYCODONE/ACETAMINOPHEN [Concomitant]
     Active Substance: ACETAMINOPHEN\OXYCODONE HYDROCHLORIDE
     Indication: PROCEDURAL PAIN
     Dosage: 5 MG/325 MG EVERY 6 HOURS AS NEEDED, 30 TABLETS TOTAL
     Route: 048
  3. BUPIVACAINE. [Suspect]
     Active Substance: BUPIVACAINE
     Indication: NERVE BLOCK
     Dosage: 5 ML OF A 50/50 MIXTURE OF 0.5% PLAIN BUPIVACAINE AND 1.3% EXPAREL AT EACH LEVEL (7 TO 11)
  4. EXPAREL [Suspect]
     Active Substance: BUPIVACAINE
     Indication: NERVE BLOCK
     Dosage: 5 ML OF A 50/50 MIXTURE OF 1.3% EXPAREL AND 0.5% PLAIN BUPIVACAINE AT EACH LEVEL (7 TO 11)

REACTIONS (2)
  - Hospitalisation [Unknown]
  - Off label use [Unknown]
